FAERS Safety Report 6418493-7 (Version None)
Quarter: 2009Q4

REPORT INFORMATION
  Report Type: 
  Country: None (occurrence: None)
  Receive Date: 20091021
  Receipt Date: 20090715
  Transmission Date: 20100525
  Serious: No
  Sender: FDA-Public Use
  Company Number: ALL1-2009-01943

PATIENT
  Age: 30 Year
  Sex: Male
  Weight: 83.9 kg

DRUGS (3)
  1. VYVANSE [Suspect]
     Indication: ATTENTION DEFICIT/HYPERACTIVITY DISORDER
     Dosage: 40 MG, 1X/DAY:QD, ORAL
     Route: 048
     Dates: start: 20090715
  2. WELLBUTRIN [Concomitant]
  3. NEXIUM [Concomitant]

REACTIONS (6)
  - DISTURBANCE IN ATTENTION [None]
  - DIZZINESS [None]
  - HYPERHIDROSIS [None]
  - NAUSEA [None]
  - SOCIAL AVOIDANT BEHAVIOUR [None]
  - SPEECH DISORDER [None]
